FAERS Safety Report 18984716 (Version 1)
Quarter: 2021Q1

REPORT INFORMATION
  Report Type: Spontaneous
  Country: JP (occurrence: JP)
  Receive Date: 20210308
  Receipt Date: 20210308
  Transmission Date: 20210420
  Serious: Yes (Other)
  Sender: FDA-Public Use
  Company Number: JP-VALIDUS PHARMACEUTICALS LLC-JP-2021VAL000361

PATIENT

DRUGS (1)
  1. ROCALTROL [Suspect]
     Active Substance: CALCITRIOL
     Indication: PRODUCT USE IN UNAPPROVED INDICATION
     Dosage: DOSAGE IS UNCERTAIN
     Route: 048
     Dates: start: 201904, end: 201905

REACTIONS (2)
  - Acute kidney injury [Unknown]
  - Hypercalcaemia [Unknown]
